FAERS Safety Report 10185024 (Version 1)
Quarter: 2014Q2

REPORT INFORMATION
  Report Type: Spontaneous
  Country: DE (occurrence: DE)
  Receive Date: 20140521
  Receipt Date: 20140521
  Transmission Date: 20141212
  Serious: Yes (Congenital Anomaly)
  Sender: FDA-Public Use
  Company Number: GXKR2014DE001931

PATIENT
  Sex: Female
  Weight: 3.24 kg

DRUGS (4)
  1. METFORMIN [Suspect]
     Indication: TYPE 2 DIABETES MELLITUS
     Dosage: 0.-33.1 GW: 2000 [MG/D ]
     Route: 064
     Dates: start: 20130324, end: 20131111
  2. CANDESARTAN CILEXETIL [Suspect]
     Indication: HYPERTENSION
     Dosage: 0--33.1 GW: DOSAGE UNKNOWN
     Route: 064
     Dates: start: 20130324, end: 20131111
  3. METOPROLOL [Concomitant]
     Indication: HYPERTENSION
     Dosage: 33.1-40.4 GW: 95 [MG/D ]
     Route: 064
     Dates: start: 20131111, end: 20140102
  4. FOLIO [Concomitant]
     Indication: VITAMIN SUPPLEMENTATION
     Dosage: 33.1-40.4 GW: 0.4 [MG/D ]
     Route: 064
     Dates: start: 20131111, end: 20140102

REACTIONS (1)
  - Ventricular septal defect [Recovered/Resolved]
